FAERS Safety Report 24611422 (Version 1)
Quarter: 2024Q4

REPORT INFORMATION
  Report Type: Spontaneous
  Country: CH (occurrence: CH)
  Receive Date: 20241113
  Receipt Date: 20241113
  Transmission Date: 20250115
  Serious: Yes (Hospitalization)
  Sender: UCB
  Company Number: None

PATIENT
  Age: 82 Year
  Sex: Male

DRUGS (16)
  1. KEPPRA [Suspect]
     Active Substance: LEVETIRACETAM
     Indication: Epilepsy
     Dosage: 500 MILLIGRAM, 2X/DAY (BID)
     Dates: start: 2009
  2. GLYXAMBI [Suspect]
     Active Substance: EMPAGLIFLOZIN\LINAGLIPTIN
     Indication: Insulin-requiring type 2 diabetes mellitus
     Dosage: 10/5 MG, 1-0-0-0, STOPPED, TAKING FOR SEVERAL YEARS, AGAIN IN THE COURSE OF JUNE 2024, PREVIOUSLY...
     Route: 048
     Dates: start: 202406, end: 20240723
  3. GLYXAMBI [Suspect]
     Active Substance: EMPAGLIFLOZIN\LINAGLIPTIN
     Dosage: 10/5 MG, 1-0-0-0, STOPPED, TAKING FOR SEVERAL YEARS, AGAIN IN THE COURSE OF JUNE 2024, PREVIOUSLY...
     Route: 048
     Dates: start: 2019, end: 202403
  4. AMLODIPINE BESYLATE\OLMESARTAN MEDOXOMIL [Suspect]
     Active Substance: AMLODIPINE BESYLATE\OLMESARTAN MEDOXOMIL
     Indication: Hypertension
     Dosage: 1 DOSAGE FORM
     Route: 048
     Dates: start: 202406, end: 20240723
  5. LINAGLIPTIN [Concomitant]
     Active Substance: LINAGLIPTIN
     Indication: Insulin-requiring type 2 diabetes mellitus
     Dosage: 5 MILLIGRAM, ONCE DAILY (QD)
     Route: 048
     Dates: start: 202403, end: 202406
  6. JARDIANCE [Concomitant]
     Active Substance: EMPAGLIFLOZIN
     Indication: Insulin-requiring type 2 diabetes mellitus
     Dosage: 10 MILLIGRAM, ONCE DAILY (QD)
     Route: 048
     Dates: start: 202403, end: 202406
  7. JARDIANCE [Concomitant]
     Active Substance: EMPAGLIFLOZIN
     Dosage: 10 MILLIGRAM, ONCE DAILY (QD)
     Route: 048
     Dates: start: 20240723
  8. AMLODIPINE BESYLATE [Concomitant]
     Active Substance: AMLODIPINE BESYLATE
     Indication: Hypertension
     Dosage: 5 MILLIGRAM, 2X/DAY (BID)
     Route: 048
     Dates: start: 202403, end: 202406
  9. CANDESARTAN CILEXETIL\HYDROCHLOROTHIAZIDE [Concomitant]
     Active Substance: CANDESARTAN CILEXETIL\HYDROCHLOROTHIAZIDE
     Indication: Hypertension
     Dosage: CANDESARTAN HCT ZENTIVA TAB 8/12.5 MG 1 - 0 - 0 - 0 ORALLY SINCE AT LEAST 03/2024 UNTIL AT LEAST 05.
     Route: 048
     Dates: start: 202403, end: 202406
  10. TRESIBA [Concomitant]
     Active Substance: INSULIN DEGLUDEC
     Indication: Insulin-requiring type 2 diabetes mellitus
     Dosage: 24 DOSAGE FORM, ONCE DAILY (QD)
     Route: 058
  11. PHENPROCOUMON [Concomitant]
     Active Substance: PHENPROCOUMON
     Indication: Product used for unknown indication
     Dosage: MARCOUMAR TAB 3 MG 0 - 0 - 0.75 - 0 ORALLY
     Route: 048
  12. FOLIC ACID [Concomitant]
     Active Substance: FOLIC ACID
     Indication: Product used for unknown indication
     Dosage: 5 MILLIGRAM, WEEKLY (QW)
     Route: 048
  13. CALCIUM CARBONATE\CHOLECALCIFEROL [Concomitant]
     Active Substance: CALCIUM CARBONATE\CHOLECALCIFEROL
     Indication: Product used for unknown indication
     Dosage: KALCIPOS-D3 FCT DS 500/800 0 - 1 - 0 - 0 ORALLY
     Route: 048
  14. MAGNESIOCARD ORANGE [Concomitant]
     Indication: Product used for unknown indication
     Dosage: 10 MILLIMOLE, ONCE DAILY (QD)
     Route: 048
  15. ATORVASTATIN [Concomitant]
     Active Substance: ATORVASTATIN
     Indication: Product used for unknown indication
     Dosage: ATORVASTATIN VIATRIS O. MEPHA FCT BLIST 40 0 - 0 - 1 - 0 ORALLY
     Route: 048
  16. PRADIF T [Concomitant]
     Active Substance: TAMSULOSIN HYDROCHLORIDE
     Indication: Product used for unknown indication
     Dosage: 400 MICROGRAM, ONCE DAILY (QD)
     Route: 048

REACTIONS (2)
  - Pemphigoid [Recovering/Resolving]
  - Linear IgA disease [Recovering/Resolving]

NARRATIVE: CASE EVENT DATE: 20240701
